FAERS Safety Report 9883595 (Version 2)
Quarter: 2014Q2

REPORT INFORMATION
  Report Type: Spontaneous
  Country: GB (occurrence: GB)
  Receive Date: 20140210
  Receipt Date: 20140507
  Transmission Date: 20141212
  Serious: Yes (Other)
  Sender: FDA-Public Use
  Company Number: GB-JNJFOC-20140117458

PATIENT
  Age: 5 Year
  Sex: Male
  Weight: 20 kg

DRUGS (4)
  1. CALPOL [Suspect]
     Indication: PYREXIA
     Dosage: 5-10 MLS
     Route: 048
  2. CALPOL [Suspect]
     Indication: HEADACHE
     Dosage: 5-10 MLS
     Route: 048
  3. CALPOL [Suspect]
     Indication: EAR PAIN
     Dosage: 5-10 MLS
     Route: 048
  4. CALPOL [Suspect]
     Indication: SOMNOLENCE
     Dosage: 5-10 MLS
     Route: 048

REACTIONS (6)
  - Eye movement disorder [Recovered/Resolved]
  - Dyskinesia [Recovered/Resolved]
  - Facial spasm [Recovered/Resolved]
  - Grimacing [Recovered/Resolved]
  - Muscle twitching [Recovered/Resolved]
  - Bruxism [Recovered/Resolved]
